FAERS Safety Report 15028775 (Version 1)
Quarter: 2018Q2

REPORT INFORMATION
  Report Type: Spontaneous
  Country: US (occurrence: US)
  Receive Date: 20180619
  Receipt Date: 20180619
  Transmission Date: 20180711
  Serious: No
  Sender: FDA-Public Use
  Company Number: US-SA-2018SA128885

PATIENT
  Age: 49 Year
  Sex: Male

DRUGS (2)
  1. MENTHOL. [Suspect]
     Active Substance: MENTHOL
     Indication: PROPHYLAXIS
     Dosage: UNK UNK,UNK
     Route: 065
     Dates: start: 201710
  2. MENTHOL. [Suspect]
     Active Substance: MENTHOL
     Indication: BACK PAIN
     Dosage: UNK UNK,UNK
     Route: 065
     Dates: start: 201804

REACTIONS (1)
  - Drug ineffective [Unknown]
